FAERS Safety Report 7155038 (Version 12)
Quarter: 2018Q2

REPORT INFORMATION
  Report Type: Spontaneous
  Country: US (occurrence: US)
  Receive Date: 20091022
  Receipt Date: 20180629
  Transmission Date: 20180711
  Serious: Yes (Death, Disabling, Other)
  Sender: FDA-Public Use
  Company Number: US-BRACCO-003619

PATIENT
  Age: 78 Year
  Sex: Female

DRUGS (36)
  1. PROHANCE [Suspect]
     Active Substance: GADOTERIDOL
     Indication: DIAGNOSTIC PROCEDURE
     Route: 065
  2. OMNISCAN [Suspect]
     Active Substance: GADODIAMIDE
     Indication: DIAGNOSTIC PROCEDURE
     Dosage: 30 ML, SINGLE
     Route: 042
     Dates: start: 20050915, end: 20050915
  3. METOPROLOL. [Concomitant]
     Active Substance: METOPROLOL
  4. ZOCOR [Concomitant]
     Active Substance: SIMVASTATIN
  5. EPOGEN [Concomitant]
     Active Substance: ERYTHROPOIETIN
  6. COUMADIN [Concomitant]
     Active Substance: WARFARIN SODIUM
  7. LASIX [Concomitant]
     Active Substance: FUROSEMIDE
  8. MULTIHANCE [Suspect]
     Active Substance: GADOBENATE DIMEGLUMINE
     Indication: DIAGNOSTIC PROCEDURE
     Dosage: 30 ML, SINGLE
     Dates: start: 20070920, end: 20070920
  9. OPTIMARK [Suspect]
     Active Substance: GADOVERSETAMIDE
     Indication: DIAGNOSTIC PROCEDURE
     Route: 065
  10. GADOLINIUM [Suspect]
     Active Substance: GADOLINIUM
     Indication: NUCLEAR MAGNETIC RESONANCE IMAGING ABDOMINAL
  11. GADOLINIUM [Suspect]
     Active Substance: GADOLINIUM
     Indication: DIAGNOSTIC PROCEDURE
     Dosage: UNK
     Dates: start: 200607, end: 200607
  12. NITROGLYCERIN. [Concomitant]
     Active Substance: NITROGLYCERIN
  13. FERROUS SULFATE. [Concomitant]
     Active Substance: FERROUS SULFATE
  14. CARDURA [Concomitant]
     Active Substance: DOXAZOSIN MESYLATE
  15. MULTIHANCE [Suspect]
     Active Substance: GADOBENATE DIMEGLUMINE
     Indication: DIAGNOSTIC PROCEDURE
     Dosage: 26 ML, SINGLE
     Route: 042
     Dates: start: 20070517, end: 20070517
  16. MAGNEVIST [Suspect]
     Active Substance: GADOPENTETATE DIMEGLUMINE
     Indication: DIAGNOSTIC PROCEDURE
     Route: 065
  17. GADOLINIUM [Suspect]
     Active Substance: GADOLINIUM
     Indication: ANGIOGRAM
  18. CATAPRES-TTS [Concomitant]
     Active Substance: CLONIDINE
  19. CARDIZEM CD [Concomitant]
     Active Substance: DILTIAZEM HYDROCHLORIDE
  20. NORVASC [Concomitant]
     Active Substance: AMLODIPINE BESYLATE
  21. MULTIHANCE [Suspect]
     Active Substance: GADOBENATE DIMEGLUMINE
     Indication: DIAGNOSTIC PROCEDURE
     Dosage: 40 ML, SINGLE
     Route: 042
     Dates: start: 20070208, end: 20070208
  22. MULTIHANCE [Suspect]
     Active Substance: GADOBENATE DIMEGLUMINE
     Route: 065
     Dates: start: 20070920, end: 20070920
  23. GADOLINIUM [Suspect]
     Active Substance: GADOLINIUM
     Indication: VENOGRAM
  24. DIGOXIN. [Concomitant]
     Active Substance: DIGOXIN
  25. COZAAR [Concomitant]
     Active Substance: LOSARTAN POTASSIUM
  26. ASPIRIN. [Concomitant]
     Active Substance: ASPIRIN
  27. PREDNISONE. [Concomitant]
     Active Substance: PREDNISONE
  28. ADVAIR DISKUS [Concomitant]
     Active Substance: FLUTICASONE PROPIONATE\SALMETEROL XINAFOATE
  29. NEPHRO VITE RX [Concomitant]
     Active Substance: ASCORBIC ACID\BIOTIN\CALCIUM PANTOTHENATE\CYANOCOBALAMIN\FOLIC ACID\NIACINAMIDE\PYRIDOXINE HYDROCHLORIDE\RIBOFLAVIN\THIAMINE MONONITRATE
  30. METOPROLOL SUCCINATE. [Concomitant]
     Active Substance: METOPROLOL SUCCINATE
  31. GADOLINIUM [Suspect]
     Active Substance: GADOLINIUM
     Indication: FISTULOGRAM
  32. GADOLINIUM [Suspect]
     Active Substance: GADOLINIUM
     Indication: DIAGNOSTIC PROCEDURE
     Dosage: UNK
     Route: 042
     Dates: start: 20000920, end: 200506
  33. PHOSLO [Concomitant]
     Active Substance: CALCIUM ACETATE
  34. DEXAMETHASONE. [Concomitant]
     Active Substance: DEXAMETHASONE
  35. SIMVASTATIN. [Concomitant]
     Active Substance: SIMVASTATIN
  36. VENOFER [Concomitant]
     Active Substance: IRON SUCROSE

REACTIONS (1)
  - Nephrogenic systemic fibrosis [Not Recovered/Not Resolved]

NARRATIVE: CASE EVENT DATE: 200712
